FAERS Safety Report 7628773-5 (Version None)
Quarter: 2011Q3

REPORT INFORMATION
  Report Type: 
  Country: None (occurrence: None)
  Receive Date: 20110722
  Receipt Date: 20110714
  Transmission Date: 20111222
  Serious: Yes (Hospitalization, Other)
  Sender: FDA-Public Use
  Company Number: US-BAYER-201031835NA

PATIENT
  Age: 43 Year
  Sex: Female
  Weight: 83.9 kg

DRUGS (29)
  1. ZITHROMAX [Concomitant]
     Indication: PRODUCT USED FOR UNKNOWN INDICATION
  2. ZOFRAN [Concomitant]
     Indication: PRODUCT USED FOR UNKNOWN INDICATION
  3. DETROL [Concomitant]
     Dosage: UNK
  4. CLINDAMYCIN [Concomitant]
     Indication: PRODUCT USED FOR UNKNOWN INDICATION
  5. OXYCODONE HCL AND ACETAMINOPHEN [Concomitant]
     Indication: PRODUCT USED FOR UNKNOWN INDICATION
  6. FENTANYL [Concomitant]
     Dosage: 0.1 MG, UNK
  7. OMEPRAZOLE [Concomitant]
     Dosage: 20 MG, UNK
  8. YAZ [Suspect]
     Indication: CONTRACEPTION
     Dosage: UNK
     Dates: start: 20071101, end: 20091201
  9. HYDROCODONE BITARTRATE AND ACETAMINOPHEN [Concomitant]
     Dosage: 325 MG, UNK
  10. TOPROL-XL [Concomitant]
     Dosage: 25 MG, QD
     Route: 048
  11. VERSED [Concomitant]
     Indication: PRODUCT USED FOR UNKNOWN INDICATION
  12. YAZ [Suspect]
     Indication: PREMENSTRUAL SYNDROME
  13. CARISOPRODOL [Concomitant]
     Dosage: 350 MG, UNK
     Route: 048
  14. OXYCODONE HCL AND ACETAMINOPHEN [Concomitant]
     Dosage: 10 MG, PRN
     Route: 048
  15. XANAX [Concomitant]
     Dosage: 2 MG, UNK
     Route: 048
  16. FLUCONAZOLE [Concomitant]
     Dosage: 150 MG, UNK
  17. IBUPROFEN [Concomitant]
     Dosage: 800 MG, UNK
     Route: 048
  18. PREDNISONE [Concomitant]
     Dosage: 10 MG, UNK
     Route: 048
  19. AVELOX [Concomitant]
     Dosage: 400 MG, UNK
     Route: 048
  20. ESTRACE [Concomitant]
     Dosage: 0.01 %, UNK
     Route: 067
  21. LYRICA [Concomitant]
     Dosage: 200 MG, BID
     Route: 048
  22. TOPAMAX [Concomitant]
     Dosage: 25 MG, QD
     Route: 048
  23. AMOXICILLIN [Concomitant]
     Indication: PRODUCT USED FOR UNKNOWN INDICATION
  24. DILAUDID [Concomitant]
     Indication: PRODUCT USED FOR UNKNOWN INDICATION
  25. ALPRAZOLAM [Concomitant]
     Dosage: 2 MG, UNK
     Route: 048
  26. DIAZEPAM [Concomitant]
     Dosage: 5 MG, UNK
     Route: 048
  27. FENTANYL [Concomitant]
     Dosage: 0.05 MG, UNK
  28. KETOROLAC TROMETHAMINE [Concomitant]
     Dosage: 10 MG, UNK
     Route: 048
  29. CIPROFLOXACIN [Concomitant]
     Indication: PRODUCT USED FOR UNKNOWN INDICATION

REACTIONS (5)
  - DEEP VEIN THROMBOSIS [None]
  - ANXIETY [None]
  - PULMONARY EMBOLISM [None]
  - CHOLECYSTECTOMY [None]
  - DEPRESSION [None]
